FAERS Safety Report 10742777 (Version 1)
Quarter: 2015Q1

REPORT INFORMATION
  Report Type: Spontaneous
  Country: US (occurrence: US)
  Receive Date: 20150127
  Receipt Date: 20150127
  Transmission Date: 20150721
  Serious: No
  Sender: FDA-Public Use
  Company Number: US-BAUSCH-BL-2015-000724

PATIENT
  Sex: Male

DRUGS (1)
  1. PENLAC [Suspect]
     Active Substance: CICLOPIROX
     Indication: PRODUCT USED FOR UNKNOWN INDICATION
     Route: 061
     Dates: start: 2014

REACTIONS (2)
  - Product difficult to remove [Unknown]
  - Nail discolouration [Unknown]
